FAERS Safety Report 11731189 (Version 1)
Quarter: 2015Q4

REPORT INFORMATION
  Report Type: Spontaneous
  Country: US (occurrence: US)
  Receive Date: 20151110
  Receipt Date: 20151110
  Transmission Date: 20160304
  Serious: No
  Sender: FDA-Public Use
  Company Number: US-ELI_LILLY_AND_COMPANY-US201203000782

PATIENT
  Sex: Male

DRUGS (2)
  1. FORTEO [Suspect]
     Active Substance: TERIPARATIDE
     Dosage: 20 UG, QD
  2. FORTEO [Suspect]
     Active Substance: TERIPARATIDE
     Dosage: 20 UG, QOD

REACTIONS (6)
  - Heart rate irregular [Unknown]
  - Pain in extremity [Unknown]
  - Memory impairment [Unknown]
  - Angina pectoris [Unknown]
  - Chest pain [Unknown]
  - Musculoskeletal pain [Unknown]
